FAERS Safety Report 5234920-5 (Version None)
Quarter: 2007Q1

REPORT INFORMATION
  Report Type: 
  Country: None (occurrence: None)
  Receive Date: 20070209
  Receipt Date: 20070130
  Transmission Date: 20070707
  Serious: Yes (Other)
  Sender: FDA-Public Use
  Company Number: US-PFIZER INC-2007009397

PATIENT
  Sex: Male
  Weight: 104.3 kg

DRUGS (18)
  1. LYRICA [Suspect]
     Indication: NEUROPATHY
  2. OMACOR [Concomitant]
  3. ZYRTEC [Concomitant]
  4. BACLOFEN [Concomitant]
  5. VIAGRA [Concomitant]
  6. NEXIUM [Concomitant]
  7. WARFARIN SODIUM [Concomitant]
  8. AVAPRO [Concomitant]
  9. ASPIRIN [Concomitant]
  10. TEMAZEPAM [Concomitant]
  11. TAMSULOSIN HCL [Concomitant]
  12. ATENOLOL [Concomitant]
  13. QUININE SULFATE [Concomitant]
  14. SIMVASTATIN [Concomitant]
  15. AMBIEN [Concomitant]
  16. ACETAMINOPHEN AND CODEINE PHOSPHATE [Concomitant]
  17. ANDROGEL [Concomitant]
  18. FUROSEMIDE [Concomitant]

REACTIONS (10)
  - BURNING SENSATION [None]
  - DIZZINESS [None]
  - DRUG INEFFECTIVE [None]
  - HYPERTENSION [None]
  - OEDEMA PERIPHERAL [None]
  - PARAESTHESIA [None]
  - PLATELET COUNT DECREASED [None]
  - PRURITUS [None]
  - RASH [None]
  - VISION BLURRED [None]
